FAERS Safety Report 5226779-7 (Version None)
Quarter: 2007Q1

REPORT INFORMATION
  Report Type: 
  Country: None (occurrence: None)
  Receive Date: 20070130
  Receipt Date: 20070115
  Transmission Date: 20070707
  Serious: Yes (Hospitalization)
  Sender: FDA-Public Use
  Company Number: 15550

PATIENT
  Age: 67 Year
  Sex: Male
  Weight: 70 kg

DRUGS (3)
  1. CARBOPLATIN [Suspect]
     Dosage: 500 MG IV
     Route: 042
     Dates: start: 20061212, end: 20061212
  2. GEMZAR [Suspect]
  3. GEMZAR [Concomitant]

REACTIONS (3)
  - ANAEMIA [None]
  - RECTAL HAEMORRHAGE [None]
  - THROMBOCYTOPENIA [None]
